FAERS Safety Report 18089894 (Version 2)
Quarter: 2020Q3

REPORT INFORMATION
  Report Type: Spontaneous
  Country: US (occurrence: US)
  Receive Date: 20200729
  Receipt Date: 20200820
  Transmission Date: 20201103
  Serious: No
  Sender: FDA-Public Use
  Company Number: US-BIOMARINAP-US-2020-131410

PATIENT
  Age: 19 Year
  Sex: Female

DRUGS (2)
  1. ALDURAZYME [Suspect]
     Active Substance: LARONIDASE
     Indication: MUCOPOLYSACCHARIDOSIS
     Dosage: 23.2 UNK
     Route: 042
     Dates: start: 20200303
  2. ALDURAZYME [Suspect]
     Active Substance: LARONIDASE
     Dosage: 23.2 MILLIGRAM, QW
     Route: 042
     Dates: start: 20161014

REACTIONS (7)
  - Feeling hot [Unknown]
  - Malaise [Unknown]
  - Nausea [Not Recovered/Not Resolved]
  - Chills [Unknown]
  - Rhinorrhoea [Not Recovered/Not Resolved]
  - Vomiting [Unknown]
  - Suspected COVID-19 [Unknown]

NARRATIVE: CASE EVENT DATE: 20200714
